FAERS Safety Report 19258410 (Version 1)
Quarter: 2021Q2

REPORT INFORMATION
  Report Type: Not Available
  Country: None (occurrence: None)
  Receive Date: 20210514
  Receipt Date: 20210514
  Transmission Date: 20210717
  Serious: Yes (Death)
  Sender: FDA-Public Use
  Company Number: US-AKORN-167266

PATIENT
  Age: 100 Year
  Sex: Female

DRUGS (1)
  1. ZIOPTAN [Suspect]
     Active Substance: TAFLUPROST

REACTIONS (4)
  - Encephalopathy [Fatal]
  - Malnutrition [Fatal]
  - Product dose omission issue [Recovered/Resolved]
  - Acute respiratory failure [Fatal]
